FAERS Safety Report 14039743 (Version 3)
Quarter: 2018Q1

REPORT INFORMATION
  Report Type: Report from Study
  Country: US (occurrence: US)
  Receive Date: 20171004
  Receipt Date: 20180130
  Transmission Date: 20180508
  Serious: Yes (Death, Hospitalization, Other)
  Sender: FDA-Public Use
  Company Number: US-GILEAD-2017-0296269

PATIENT

DRUGS (4)
  1. QUETIAPINE. [Concomitant]
     Active Substance: QUETIAPINE
  2. DOCUSATE SODIUM. [Concomitant]
     Active Substance: DOCUSATE SODIUM
     Dosage: 100 MG, BID
  3. MIDODRINE [Concomitant]
     Active Substance: MIDODRINE
  4. RANOLAZINE. [Suspect]
     Active Substance: RANOLAZINE
     Indication: VENTRICULAR ARRHYTHMIA
     Dosage: UNK
     Route: 065

REACTIONS (5)
  - Cardiomyopathy [Fatal]
  - Multiple organ dysfunction syndrome [Fatal]
  - Gastrointestinal disorder [Unknown]
  - Cardiac failure congestive [Fatal]
  - Endocrine disorder [Unknown]
